FAERS Safety Report 4349111-X (Version None)
Quarter: 2004Q2

REPORT INFORMATION
  Report Type: 
  Country: None (occurrence: None)
  Receive Date: 20040427
  Receipt Date: 20040427
  Transmission Date: 20050107
  Serious: Yes (Hospitalization)
  Sender: FDA-Public Use
  Company Number: None

PATIENT
  Sex: Female
  Weight: 2.7216 kg

DRUGS (2)
  1. SYNAGIS [Suspect]
     Indication: PREMATURE BABY
     Dosage: 41MG 1ST DOSE INTRAMUSCULAR
     Route: 030
     Dates: start: 20040311, end: 20040311
  2. STERILE WATER [Suspect]
     Indication: RESPIRATORY DISORDER NEONATAL
     Dosage: 41 MG 1ST DOSE INTRAMUSCULAR
     Route: 030
     Dates: start: 20040311, end: 20040311

REACTIONS (4)
  - APNOEA [None]
  - CYANOSIS [None]
  - HEART RATE DECREASED [None]
  - SYNCOPE [None]
